FAERS Safety Report 4360449-2 (Version None)
Quarter: 2004Q2

REPORT INFORMATION
  Report Type: 
  Country: None (occurrence: None)
  Receive Date: 20040514
  Receipt Date: 20040504
  Transmission Date: 20050107
  Serious: Yes (Other)
  Sender: FDA-Public Use
  Company Number: HQWYE880016MAR04

PATIENT
  Age: 47 Year
  Sex: Female
  Weight: 54.48 kg

DRUGS (7)
  1. PROTONIX [Suspect]
     Indication: PEPTIC ULCER
     Dosage: SEE IMAGE
     Route: 048
     Dates: start: 20031001, end: 20040201
  2. PROTONIX [Suspect]
     Indication: PEPTIC ULCER
     Dosage: SEE IMAGE
     Route: 048
     Dates: start: 20040201, end: 20040301
  3. PROTONIX [Suspect]
     Indication: PEPTIC ULCER
     Dosage: SEE IMAGE
     Route: 048
     Dates: start: 20040301, end: 20040301
  4. PROTONIX [Suspect]
     Indication: PEPTIC ULCER
     Dosage: SEE IMAGE
     Route: 048
     Dates: start: 20040301, end: 20040308
  5. PROTONIX [Suspect]
     Indication: PEPTIC ULCER
     Dosage: SEE IMAGE
     Route: 048
     Dates: start: 20040309, end: 20040309
  6. PROTONIX [Suspect]
     Indication: PEPTIC ULCER
     Dosage: SEE IMAGE
     Route: 048
     Dates: start: 20040310, end: 20040310
  7. LORAZEPAM [Concomitant]

REACTIONS (20)
  - ABDOMINAL PAIN UPPER [None]
  - ABNORMAL FAECES [None]
  - ANOREXIA [None]
  - BLOOD GASTRIN INCREASED [None]
  - BLOOD PRESSURE DECREASED [None]
  - BOWEL SOUNDS ABNORMAL [None]
  - BREAST PAIN [None]
  - CHEST PAIN [None]
  - DEHYDRATION [None]
  - DYSGEUSIA [None]
  - ELECTROLYTE IMBALANCE [None]
  - EROSIVE OESOPHAGITIS [None]
  - FLATULENCE [None]
  - GALLBLADDER DISORDER [None]
  - GASTROOESOPHAGEAL REFLUX DISEASE [None]
  - HYPERCHLORHYDRIA [None]
  - MALABSORPTION [None]
  - NAUSEA [None]
  - PULSE PRESSURE DECREASED [None]
  - WEIGHT DECREASED [None]
